FAERS Safety Report 24689784 (Version 1)
Quarter: 2024Q4

REPORT INFORMATION
  Report Type: Spontaneous
  Country: NO (occurrence: NO)
  Receive Date: 20241203
  Receipt Date: 20241203
  Transmission Date: 20250115
  Serious: Yes (Life-Threatening)
  Sender: TEVA
  Company Number: None

PATIENT
  Age: 35 Year
  Sex: Female

DRUGS (2)
  1. MORPHINE [Suspect]
     Active Substance: MORPHINE
     Indication: Cluster headache
     Dosage: TIME INTERVAL: TOTAL: 7.5 MG IV ADMINISTERED AT 19:30 PREHOSPITAL; 5 MG IV ADMINISTERED AT 21:18 ...
     Route: 042
     Dates: start: 20241029, end: 20241029
  2. SUMATRIPTAN SUCCINATE [Concomitant]
     Active Substance: SUMATRIPTAN SUCCINATE
     Indication: Cluster headache
     Dosage: TIME INTERVAL: TOTAL: 20 MG ADMINISTERED IN THE ER AT 22:40
     Route: 065
     Dates: start: 20241029, end: 20241029

REACTIONS (2)
  - Respiratory depression [Recovered/Resolved]
  - Oxygen saturation decreased [Recovered/Resolved]

NARRATIVE: CASE EVENT DATE: 20241029
